FAERS Safety Report 7899901-1 (Version None)
Quarter: 2011Q4

REPORT INFORMATION
  Report Type: 
  Country: None (occurrence: None)
  Receive Date: 20111107
  Receipt Date: 20111004
  Transmission Date: 20120403
  Serious: No
  Sender: FDA-Public Use
  Company Number: US-AMGEN-USASP2011039830

PATIENT
  Age: 59 Year
  Sex: Male
  Weight: 77.098 kg

DRUGS (2)
  1. ENBREL [Suspect]
     Indication: PSORIATIC ARTHROPATHY
     Dosage: 50 MG, QWK
     Dates: start: 20070711
  2. ENBREL [Suspect]
     Indication: PSORIASIS

REACTIONS (3)
  - MALAISE [None]
  - NASOPHARYNGITIS [None]
  - EXOSTOSIS [None]
